FAERS Safety Report 8469287-2 (Version None)
Quarter: 2012Q2

REPORT INFORMATION
  Report Type: 
  Country: None (occurrence: None)
  Receive Date: 20120626
  Receipt Date: 20120620
  Transmission Date: 20120825
  Serious: Yes (Hospitalization, Other)
  Sender: FDA-Public Use
  Company Number: BR-ELI_LILLY_AND_COMPANY-BR201206006789

PATIENT
  Sex: Female
  Weight: 69 kg

DRUGS (2)
  1. LANTUS [Concomitant]
     Dosage: UNK, UNKNOWN
     Route: 065
  2. HUMALOG [Suspect]
     Indication: TYPE 1 DIABETES MELLITUS
     Dosage: UNK, PRN
     Route: 058

REACTIONS (5)
  - BLOOD GLUCOSE ABNORMAL [None]
  - BLOOD CREATININE INCREASED [None]
  - URINE POTASSIUM DECREASED [None]
  - INCORRECT DOSE ADMINISTERED BY DEVICE [None]
  - KETOACIDOSIS [None]
